FAERS Safety Report 24566739 (Version 1)
Quarter: 2024Q4

REPORT INFORMATION
  Report Type: Spontaneous
  Country: US (occurrence: None)
  Receive Date: 20241030
  Receipt Date: 20241030
  Transmission Date: 20250115
  Serious: Yes (Hospitalization)
  Sender: Public
  Company Number: None

PATIENT
  Sex: Male

DRUGS (8)
  1. EVEROLIMUS [Suspect]
     Active Substance: EVEROLIMUS
     Indication: Liver transplant
     Route: 048
     Dates: start: 20221119
  2. CREON CAP 24000UNT [Concomitant]
  3. FOLIC ACID TAB 1000MCG [Concomitant]
  4. FUROSEMIDE [Concomitant]
     Active Substance: FUROSEMIDE
  5. FUROSEMIDE [Concomitant]
     Active Substance: FUROSEMIDE
  6. METOPROL TAR TAB 25MG [Concomitant]
  7. NIFEDIPINE TAB 60MG ER [Concomitant]
  8. SPIRONOLACT TAB 25MG [Concomitant]

REACTIONS (1)
  - Hospitalisation [None]
